FAERS Safety Report 21379660 (Version 2)
Quarter: 2022Q4

REPORT INFORMATION
  Report Type: Report from Study
  Country: AU (occurrence: AU)
  Receive Date: 20220927
  Receipt Date: 20221003
  Transmission Date: 20230113
  Serious: Yes (Hospitalization)
  Sender: FDA-Public Use
  Company Number: AU-GLAXOSMITHKLINE-AU2022GSK136682

PATIENT

DRUGS (53)
  1. BELANTAMAB MAFODOTIN [Suspect]
     Active Substance: BELANTAMAB MAFODOTIN
     Indication: Plasma cell myeloma refractory
     Dosage: 2.50 MG/KG, Q4W (DAY 1 OF 28 DAY CYCLE)
     Route: 042
     Dates: start: 20210607, end: 20210607
  2. BELANTAMAB MAFODOTIN [Suspect]
     Active Substance: BELANTAMAB MAFODOTIN
     Dosage: 169 MG, Q4W (DAY 1 OF 28 DAY CYCLE)
     Route: 042
     Dates: start: 20210706, end: 20210706
  3. BELANTAMAB MAFODOTIN [Suspect]
     Active Substance: BELANTAMAB MAFODOTIN
     Dosage: 1.40 MG/KG, Q4W (DAY 1 OF 28 DAY CYCLE)
     Route: 042
     Dates: start: 20220802, end: 20220802
  4. POMALIDOMIDE [Suspect]
     Active Substance: POMALIDOMIDE
     Indication: Plasma cell myeloma refractory
     Dosage: 4 MG, DAYS 1-21 OF 28 DAY CYCLE
     Route: 048
     Dates: start: 20210607, end: 20210627
  5. POMALIDOMIDE [Suspect]
     Active Substance: POMALIDOMIDE
     Dosage: 4 MG, DAYS 1-21 OF 28 DAY CYCLE
     Route: 048
     Dates: start: 20210707, end: 20210728
  6. POMALIDOMIDE [Suspect]
     Active Substance: POMALIDOMIDE
     Dosage: 4 MG, DAYS 1-21 OF 28 DAY CYCLE
     Route: 048
     Dates: start: 20220802
  7. POMALIDOMIDE [Suspect]
     Active Substance: POMALIDOMIDE
     Dosage: 4 MG, DAYS 1-21 OF 28 DAY CYCLE
     Route: 048
     Dates: start: 20220830
  8. DEXAMETHASONE [Suspect]
     Active Substance: DEXAMETHASONE
     Indication: Plasma cell myeloma refractory
     Dosage: 20 MG, DAY 1,8,15,22 OF 28 DAY CYCLE
     Route: 048
     Dates: start: 20210607, end: 20210628
  9. DEXAMETHASONE [Suspect]
     Active Substance: DEXAMETHASONE
     Dosage: 20 MG, DAY 1,8,15,22 OF 28 DAY CYCLE
     Route: 048
     Dates: start: 20210706, end: 20210728
  10. DEXAMETHASONE [Suspect]
     Active Substance: DEXAMETHASONE
     Dosage: 4 MG, DAY 1 OF 28 DAY CYCLE
     Route: 048
     Dates: start: 20220802
  11. DEXAMETHASONE [Suspect]
     Active Substance: DEXAMETHASONE
     Dosage: 4 MG, DAY 1 OF 28 DAY CYCLE
     Route: 048
     Dates: start: 20220830
  12. ZIRCOL [Concomitant]
     Indication: Hypertension
     Dosage: 10 MG, QOD
     Route: 048
     Dates: start: 20150301
  13. TELMISARTAN [Concomitant]
     Active Substance: TELMISARTAN
     Indication: Hypertension
     Dosage: 40 MG, QOD
     Route: 048
     Dates: start: 20150301
  14. ATORVASTATIN CALCIUM [Concomitant]
     Active Substance: ATORVASTATIN CALCIUM
     Indication: Hyperlipidaemia
     Dosage: 80 MG, QOD
     Route: 048
     Dates: start: 20150301
  15. ALLOPURINOL [Concomitant]
     Active Substance: ALLOPURINOL
     Indication: Gout
     Dosage: 300 MG, QOD
     Route: 048
     Dates: start: 20180101
  16. EMPAGLIFLOZIN\METFORMIN HYDROCHLORIDE [Concomitant]
     Active Substance: EMPAGLIFLOZIN\METFORMIN HYDROCHLORIDE
     Indication: Diabetes mellitus
     Dosage: 12.5/500 MG, QOD
     Route: 048
     Dates: start: 20170101
  17. MIRCERA [Concomitant]
     Active Substance: METHOXY POLYETHYLENE GLYCOL-EPOETIN BETA
     Indication: Red blood cell count decreased
     Dosage: 75 UG, QM
     Route: 058
     Dates: start: 20180601
  18. PANTOPRAZOLE [Concomitant]
     Active Substance: PANTOPRAZOLE
     Indication: Dyspepsia
     Dosage: 20 MG, QOD
     Route: 048
     Dates: start: 20190101
  19. MAGNESIUM [Concomitant]
     Active Substance: MAGNESIUM
     Indication: Supplementation therapy
     Dosage: 1000 MG, QOD
     Route: 048
     Dates: start: 20190101, end: 20220513
  20. MAGNESIUM [Concomitant]
     Active Substance: MAGNESIUM
     Indication: Muscle spasms
     Dosage: 1000 MG, BID
     Route: 048
     Dates: start: 20220625
  21. MAGNESIUM [Concomitant]
     Active Substance: MAGNESIUM
     Indication: Hypomagnesaemia
     Dosage: 1000 MG, BID
     Route: 048
     Dates: start: 20220517, end: 20220524
  22. MAGNESIUM [Concomitant]
     Active Substance: MAGNESIUM
     Dosage: 1500 MG, BID
     Route: 048
     Dates: start: 20220525, end: 20220624
  23. DIETARY SUPPLEMENT\RESVERATROL [Concomitant]
     Active Substance: DIETARY SUPPLEMENT\RESVERATROL
     Indication: Supplementation therapy
     Dosage: 120 MG, QOD
     Route: 048
     Dates: start: 20190601, end: 20210601
  24. VALACYCLOVIR HYDROCHLORIDE [Concomitant]
     Active Substance: VALACYCLOVIR HYDROCHLORIDE
     Indication: Supplementation therapy
     Dosage: 500 MG, QOD
     Route: 048
     Dates: start: 20210607
  25. SULFAMETHOXAZOLE\TRIMETHOPRIM [Concomitant]
     Active Substance: SULFAMETHOXAZOLE\TRIMETHOPRIM
     Indication: Prophylaxis
     Dosage: 1 TABLET 3 TIMES PER WEEK
     Route: 048
     Dates: start: 20210607
  26. ZOLEDRONIC ACID [Concomitant]
     Active Substance: ZOLEDRONIC ACID
     Indication: Supplementation therapy
     Dosage: 3.3 MG QM
     Route: 042
     Dates: start: 20210706, end: 20220215
  27. ZOLEDRONIC ACID [Concomitant]
     Active Substance: ZOLEDRONIC ACID
     Dosage: 3 MG QM
     Route: 042
     Dates: start: 20220315
  28. AMOXICILLIN [Concomitant]
     Active Substance: AMOXICILLIN
     Indication: Pneumonia
     Dosage: 1000 MG, BID
     Route: 048
     Dates: start: 20210625, end: 20210704
  29. AMOXICILLIN [Concomitant]
     Active Substance: AMOXICILLIN
     Indication: Upper respiratory tract infection
     Dosage: 500 MG, TID
     Route: 048
     Dates: start: 20220215, end: 20220220
  30. AMOXICILLIN [Concomitant]
     Active Substance: AMOXICILLIN
     Dosage: 500 MG, TID
     Route: 048
     Dates: start: 20220505, end: 20220513
  31. AMOXICILLIN [Concomitant]
     Active Substance: AMOXICILLIN
     Dosage: 1000 MG, TID
     Route: 048
     Dates: start: 20220517, end: 20220522
  32. POLYVINYL ALCOHOL\POVIDONE [Concomitant]
     Active Substance: POLYVINYL ALCOHOL\POVIDONE
     Indication: Lacrimation increased
     Dosage: 1-2 DROP PRN
     Route: 047
     Dates: start: 20160101, end: 20210606
  33. DOXYCYCLINE SUSTAINED RELEASE [Concomitant]
     Indication: Pneumonia
     Dosage: 100 MG, BID
     Route: 048
     Dates: start: 20210625, end: 20210629
  34. DOXYCYCLINE SUSTAINED RELEASE [Concomitant]
     Dosage: 100 MG, QOD
     Route: 048
     Dates: start: 20210629, end: 20210709
  35. METFORMIN [Concomitant]
     Active Substance: METFORMIN HYDROCHLORIDE
     Indication: Diabetes mellitus
     Dosage: 1000 MG, QD
     Route: 048
     Dates: start: 20210803
  36. METFORMIN [Concomitant]
     Active Substance: METFORMIN HYDROCHLORIDE
     Dosage: 500 MG, QD
     Route: 048
     Dates: start: 20220924
  37. GLICLAZIDE [Concomitant]
     Active Substance: GLICLAZIDE
     Indication: Diabetes mellitus
     Dosage: 60 MG ONE TIME PER WEEK
     Route: 048
     Dates: start: 20210804
  38. TAMSULOSIN [Concomitant]
     Active Substance: TAMSULOSIN
     Indication: Benign prostatic hyperplasia
     Dosage: 400 ?G, QD
     Route: 048
     Dates: start: 20220324
  39. PENICILLIN G SODIUM [Concomitant]
     Active Substance: PENICILLIN G SODIUM
     Indication: Pneumonia
     Dosage: 1.2 G Q6H
     Route: 042
     Dates: start: 20220514, end: 20220517
  40. ENOXAPARIN [Concomitant]
     Active Substance: ENOXAPARIN
     Indication: Thrombosis prophylaxis
     Dosage: 40 MG, QD
     Route: 058
     Dates: start: 20220413, end: 20220516
  41. ENOXAPARIN [Concomitant]
     Active Substance: ENOXAPARIN
     Indication: Atrial fibrillation
  42. DOXYCYCLINE [Concomitant]
     Active Substance: DOXYCYCLINE
     Indication: Pneumonia
     Dosage: 100 MG, QD
     Route: 048
     Dates: start: 20220514, end: 20220517
  43. DOXYCYCLINE [Concomitant]
     Active Substance: DOXYCYCLINE
     Dosage: 100 MG, BID
     Route: 048
     Dates: start: 20220517, end: 20220522
  44. FLUAD QUAD [Concomitant]
     Indication: Antiviral prophylaxis
     Dosage: 1 UNKNOWN, ONCE
     Route: 030
     Dates: start: 20220603, end: 20220603
  45. ASPIRIN [Concomitant]
     Active Substance: ASPIRIN
     Indication: Thrombosis prophylaxis
     Dosage: 100 MG, QD
     Route: 048
     Dates: start: 2020, end: 20220924
  46. TIXAGEVIMAB [Concomitant]
     Active Substance: TIXAGEVIMAB
     Indication: COVID-19 prophylaxis
     Dosage: 150 MG, SINGLE
     Route: 030
     Dates: start: 20220802, end: 20220802
  47. CILGAVIMAB [Concomitant]
     Active Substance: CILGAVIMAB
     Indication: COVID-19 prophylaxis
     Dosage: 150 MG, SINGLE
     Route: 042
     Dates: start: 20220802, end: 20220802
  48. TROPICAMIDE [Concomitant]
     Active Substance: TROPICAMIDE
     Indication: Pupil dilation procedure
     Dosage: 1 DROP QM
     Route: 047
     Dates: start: 20210528
  49. VAXZEVRIA ASTRAZENECA [Concomitant]
     Indication: Prophylaxis
     Dosage: 1 UNKNOWN, ONCE
     Route: 030
     Dates: start: 20210907, end: 20210907
  50. VAXZEVRIA ASTRAZENECA [Concomitant]
     Dosage: 1 UNKNOWN, ONCE
     Route: 030
     Dates: start: 20211020, end: 20211020
  51. MODERNA SPIKEVAX [Concomitant]
     Indication: Prophylaxis
     Dosage: 1 UNKNOWN, ONCE
     Route: 030
     Dates: start: 20220114, end: 20220114
  52. MODERNA SPIKEVAX [Concomitant]
     Dosage: 1 UNKNOWN, ONCE
     Route: 030
     Dates: start: 20220609, end: 20220609
  53. GENTEAL MILD [Concomitant]
     Active Substance: HYPROMELLOSE 2910 (4000 MPA.S)
     Indication: Ocular discomfort
     Dosage: UNK
     Dates: start: 20220923

REACTIONS (1)
  - Cardiac failure congestive [Recovering/Resolving]

NARRATIVE: CASE EVENT DATE: 20220923
